FAERS Safety Report 17212313 (Version 1)
Quarter: 2019Q4

REPORT INFORMATION
  Report Type: Spontaneous
  Country: US (occurrence: US)
  Receive Date: 20191230
  Receipt Date: 20191230
  Transmission Date: 20200122
  Serious: No
  Sender: FDA-Public Use
  Company Number: US-ORIENT PHARMA-000010

PATIENT
  Age: 84 Year
  Sex: Male

DRUGS (1)
  1. CARISOPRODOL ORIENT PHARMA [Suspect]
     Active Substance: CARISOPRODOL
     Indication: MUSCLE SPASMS
     Dates: start: 20181103, end: 201811

REACTIONS (3)
  - Aggression [Recovered/Resolved]
  - Hallucination [Recovered/Resolved]
  - Agitation [Recovered/Resolved]
